FAERS Safety Report 16110033 (Version 1)
Quarter: 2019Q1

REPORT INFORMATION
  Report Type: Spontaneous
  Country: US (occurrence: US)
  Receive Date: 20190325
  Receipt Date: 20190325
  Transmission Date: 20190418
  Serious: No
  Sender: FDA-Public Use
  Company Number: US-TEVA-2019-US-1029555

PATIENT
  Weight: 74.84 kg

DRUGS (1)
  1. DIFLUNISAL. [Suspect]
     Active Substance: DIFLUNISAL
     Route: 048

REACTIONS (2)
  - Drug ineffective [Unknown]
  - Loss of personal independence in daily activities [Unknown]
